FAERS Safety Report 18414183 (Version 1)
Quarter: 2020Q4

REPORT INFORMATION
  Report Type: Spontaneous
  Country: IT (occurrence: IT)
  Receive Date: 20201022
  Receipt Date: 20201022
  Transmission Date: 20210114
  Serious: Yes (Other)
  Sender: FDA-Public Use
  Company Number: IT-BAUSCH-BL-2020-028448

PATIENT
  Age: 49 Year
  Sex: Female

DRUGS (6)
  1. OLANZAPINE. [Suspect]
     Active Substance: OLANZAPINE
     Indication: DELUSIONAL DISORDER, MIXED TYPE
     Dosage: 3 TABLETS IN TOTAL
     Route: 048
     Dates: start: 20181115, end: 20181115
  2. DAPAROX [Concomitant]
     Active Substance: PAROXETINE
     Indication: DELUSIONAL DISORDER, MIXED TYPE
     Route: 048
  3. LORAZEPAM. [Suspect]
     Active Substance: LORAZEPAM
     Dosage: DOSE REDUCED
     Route: 065
  4. LORAZEPAM. [Suspect]
     Active Substance: LORAZEPAM
     Indication: ANXIETY
     Dosage: 3 TABLETS IN TOTAL
     Route: 048
     Dates: start: 20181115, end: 20181115
  5. XANAX [Concomitant]
     Active Substance: ALPRAZOLAM
     Indication: DELUSIONAL DISORDER, MIXED TYPE
     Route: 048
  6. ESIDREX [Concomitant]
     Active Substance: HYDROCHLOROTHIAZIDE
     Indication: HYPERTENSION
     Route: 048

REACTIONS (2)
  - Drug abuse [Recovering/Resolving]
  - Vomiting [Recovering/Resolving]

NARRATIVE: CASE EVENT DATE: 20181115
